FAERS Safety Report 14158496 (Version 4)
Quarter: 2017Q4

REPORT INFORMATION
  Report Type: Spontaneous
  Country: GB (occurrence: GB)
  Receive Date: 20171103
  Receipt Date: 20171120
  Transmission Date: 20180321
  Serious: Yes (Death, Other)
  Sender: FDA-Public Use
  Company Number: GB-MYLANLABS-2011S1005031

PATIENT
  Age: 70 Year
  Sex: Male

DRUGS (6)
  1. EPINEPHRINE. [Suspect]
     Active Substance: EPINEPHRINE
     Dosage: 0.3 MG, PRN
     Route: 058
     Dates: start: 20070826, end: 20070826
  2. ADRENALIN [Suspect]
     Active Substance: EPINEPHRINE
     Indication: ANAPHYLACTIC REACTION
     Dosage: UNK
     Route: 042
     Dates: start: 20070826, end: 20070826
  3. EPINEPHRINE. [Suspect]
     Active Substance: EPINEPHRINE
     Dosage: 0.3 MG, PRN
     Route: 058
     Dates: start: 20070826, end: 20070826
  4. EPINEPHRINE. [Suspect]
     Active Substance: EPINEPHRINE
     Indication: ARTHROPOD STING
     Dosage: 0.3 MG, PRN
     Route: 058
     Dates: start: 20070826, end: 20070826
  5. EPINEPHRINE. [Suspect]
     Active Substance: EPINEPHRINE
     Dosage: 0.3 MG, PRN
     Route: 058
     Dates: start: 20070826, end: 20070826
  6. ADRENALIN [Suspect]
     Active Substance: EPINEPHRINE
     Indication: ARTHROPOD STING

REACTIONS (3)
  - Pulse absent [Fatal]
  - Cardiac arrest [Fatal]
  - Drug ineffective [Fatal]

NARRATIVE: CASE EVENT DATE: 20070826
